FAERS Safety Report 20571793 (Version 1)
Quarter: 2022Q1

REPORT INFORMATION
  Report Type: Report from Study
  Country: IT (occurrence: IT)
  Receive Date: 20220309
  Receipt Date: 20220309
  Transmission Date: 20220423
  Serious: Yes (Other)
  Sender: FDA-Public Use
  Company Number: None

PATIENT
  Age: 75 Year
  Sex: Female
  Weight: 57 kg

DRUGS (2)
  1. METHOTREXATE (METHOTREXATE SODIUM) [Suspect]
     Active Substance: METHOTREXATE SODIUM
     Indication: Metaplastic breast carcinoma
     Dosage: METOTRESSATE TEVA 100 MG / ML, UNIT DOSE : 60 MG
     Dates: start: 20210722
  2. FLUOROURACIL [Suspect]
     Active Substance: FLUOROURACIL
     Indication: Metaplastic breast carcinoma
     Dosage: FLUOROURACIL TEVA 5 G / 100 ML , UNIT DOSE : 900 MG
     Dates: start: 20210722

REACTIONS (2)
  - Neutropenia [Unknown]
  - Mucosal inflammation [Unknown]

NARRATIVE: CASE EVENT DATE: 20220211
